FAERS Safety Report 17883500 (Version 2)
Quarter: 2020Q2

REPORT INFORMATION
  Report Type: Report from Study
  Country: RU (occurrence: RU)
  Receive Date: 20200611
  Receipt Date: 20200617
  Transmission Date: 20200714
  Serious: Yes (Other)
  Sender: FDA-Public Use
  Company Number: RU-ASTRAZENECA-2020SE68789

PATIENT
  Age: 40 Year
  Sex: Female

DRUGS (4)
  1. LYNPARZA [Suspect]
     Active Substance: OLAPARIB
     Indication: OVARIAN CANCER STAGE III
     Dosage: 750 MG: 150, 150, 75 MG (1/2 OF 150 MG) - TWICE A DAY.
     Route: 048
     Dates: start: 20200116, end: 20200505
  2. LYNPARZA [Suspect]
     Active Substance: OLAPARIB
     Indication: OVARIAN CANCER STAGE III
     Route: 048
     Dates: start: 20200601
  3. LYNPARZA [Suspect]
     Active Substance: OLAPARIB
     Indication: BRCA1 GENE MUTATION
     Route: 048
     Dates: start: 20200601
  4. LYNPARZA [Suspect]
     Active Substance: OLAPARIB
     Indication: BRCA1 GENE MUTATION
     Dosage: 750 MG: 150, 150, 75 MG (1/2 OF 150 MG) - TWICE A DAY.
     Route: 048
     Dates: start: 20200116, end: 20200505

REACTIONS (3)
  - Product prescribing error [Recovered/Resolved]
  - Anaemia [Recovered/Resolved with Sequelae]
  - Incorrect dose administered [Recovered/Resolved]

NARRATIVE: CASE EVENT DATE: 20200505
